FAERS Safety Report 25103780 (Version 1)
Quarter: 2025Q1

REPORT INFORMATION
  Report Type: Spontaneous
  Country: US (occurrence: US)
  Receive Date: 20250321
  Receipt Date: 20250321
  Transmission Date: 20250409
  Serious: No
  Sender: GLAXOSMITHKLINE
  Company Number: US-GSK-US2025030205

PATIENT
  Age: 87 Year
  Sex: Female

DRUGS (3)
  1. ANORO ELLIPTA [Suspect]
     Active Substance: UMECLIDINIUM BROMIDE\VILANTEROL TRIFENATATE
     Indication: Asthma
     Dosage: 1 PUFF(S), QD 62.5/25 MCG
     Dates: start: 20250312
  2. ANORO ELLIPTA [Suspect]
     Active Substance: UMECLIDINIUM BROMIDE\VILANTEROL TRIFENATATE
     Indication: Chronic obstructive pulmonary disease
  3. LEVOTHYROXINE [Concomitant]
     Active Substance: LEVOTHYROXINE
     Indication: Thyroid disorder
     Dosage: 1 DF, QD
     Route: 048

REACTIONS (6)
  - Blood pressure increased [Recovering/Resolving]
  - Headache [Not Recovered/Not Resolved]
  - Loss of bladder sensation [Not Recovered/Not Resolved]
  - Dysphonia [Not Recovered/Not Resolved]
  - Urinary incontinence [Unknown]
  - Off label use [Unknown]

NARRATIVE: CASE EVENT DATE: 20250301
